FAERS Safety Report 23975758 (Version 1)
Quarter: 2024Q2

REPORT INFORMATION
  Report Type: Spontaneous
  Country: US (occurrence: US)
  Receive Date: 20240614
  Receipt Date: 20240614
  Transmission Date: 20240716
  Serious: Yes (Hospitalization, Other)
  Sender: FDA-Public Use
  Company Number: US-ABBVIE-5799336

PATIENT
  Sex: Female

DRUGS (8)
  1. BOTOX [Suspect]
     Active Substance: ONABOTULINUMTOXINA
     Indication: Product used for unknown indication
     Dosage: TIME INTERVAL: AS NECESSARY: FREQUENCY-EVERY 3 MONTHS
     Route: 065
  2. NURTEC ODT [Suspect]
     Active Substance: RIMEGEPANT SULFATE
     Indication: Migraine
     Dosage: TIME INTERVAL: AS NECESSARY: 75 MG
     Route: 048
     Dates: start: 2021
  3. MAXALT [Concomitant]
     Active Substance: RIZATRIPTAN BENZOATE
     Indication: Migraine
  4. PROMETHAZINE [Concomitant]
     Active Substance: PROMETHAZINE HYDROCHLORIDE
     Indication: Migraine
     Dosage: TIME INTERVAL: AS NECESSARY: 25 MG
  5. BENADRYL [Concomitant]
     Active Substance: DIPHENHYDRAMINE HYDROCHLORIDE
     Indication: Migraine
     Dosage: TIME INTERVAL: AS NECESSARY: 50 MG
  6. IMITREX [Concomitant]
     Active Substance: SUMATRIPTAN SUCCINATE
     Indication: Migraine
  7. TYLENOL [Concomitant]
     Active Substance: ACETAMINOPHEN
     Indication: Migraine
     Dosage: TIME INTERVAL: AS NECESSARY: 500 MG
  8. ASPIRIN [Concomitant]
     Active Substance: ASPIRIN
     Indication: Migraine
     Dosage: 81 MG
     Route: 048
     Dates: start: 202308

REACTIONS (4)
  - Complication of pregnancy [Unknown]
  - Postpartum disorder [Unknown]
  - Maternal exposure during pregnancy [Unknown]
  - Live birth [Unknown]
